FAERS Safety Report 6251028-0 (Version None)
Quarter: 2009Q2

REPORT INFORMATION
  Report Type: 
  Country: None (occurrence: None)
  Receive Date: 20090626
  Receipt Date: 20090622
  Transmission Date: 20091009
  Serious: Yes (Hospitalization, Other)
  Sender: FDA-Public Use
  Company Number: ADR5472009

PATIENT
  Age: 24 Year
  Sex: Female

DRUGS (2)
  1. LAMOTRIGINE [Suspect]
     Dosage: 4200 MG (OVERDOSE) ORAL
     Route: 048
     Dates: start: 20070301
  2. ETHANOL [Concomitant]

REACTIONS (11)
  - ATAXIA [None]
  - BLOOD ALCOHOL INCREASED [None]
  - DEHYDRATION [None]
  - DYSARTHRIA [None]
  - INTENTIONAL OVERDOSE [None]
  - LETHARGY [None]
  - METABOLIC ACIDOSIS [None]
  - NYSTAGMUS [None]
  - OVERDOSE [None]
  - PANCREATITIS ACUTE [None]
  - SINUS TACHYCARDIA [None]
